FAERS Safety Report 7123627-5 (Version None)
Quarter: 2010Q4

REPORT INFORMATION
  Report Type: 
  Country: None (occurrence: None)
  Receive Date: 20101125
  Receipt Date: 20101115
  Transmission Date: 20110411
  Serious: Yes (Hospitalization, Other)
  Sender: FDA-Public Use
  Company Number: US-SANOFI-AVENTIS-2010SA043843

PATIENT
  Age: 78 Year
  Sex: Female
  Weight: 78 kg

DRUGS (11)
  1. MULTAQ [Suspect]
     Indication: ATRIAL FIBRILLATION
     Route: 048
     Dates: start: 20100608
  2. COUMADIN [Suspect]
     Route: 048
  3. COREG [Concomitant]
  4. DIOVAN HCT [Concomitant]
     Dosage: 320/12.5MG
  5. METFORMIN [Concomitant]
  6. ACTOS [Concomitant]
  7. EFFEXOR [Concomitant]
  8. LEXAPRO [Concomitant]
  9. MULTI-VITAMINS [Concomitant]
  10. VITAMIN D [Concomitant]
  11. LOVAZA [Concomitant]

REACTIONS (3)
  - FALL [None]
  - INTERNATIONAL NORMALISED RATIO INCREASED [None]
  - VASCULAR PSEUDOANEURYSM [None]
